FAERS Safety Report 10869406 (Version 7)
Quarter: 2016Q4

REPORT INFORMATION
  Report Type: Spontaneous
  Country: BR (occurrence: BR)
  Receive Date: 20150226
  Receipt Date: 20161228
  Transmission Date: 20170206
  Serious: Yes (Other)
  Sender: FDA-Public Use
  Company Number: BR-009507513-1502BRA010617

PATIENT
  Sex: Female
  Weight: 44 kg

DRUGS (3)
  1. MERCILON [Suspect]
     Active Substance: DESOGESTREL\ETHINYL ESTRADIOL
     Dosage: 3 WEEKS OF USE AND 1 WEEK OF PAUSE
     Route: 048
  2. MERCILON [Suspect]
     Active Substance: DESOGESTREL\ETHINYL ESTRADIOL
     Indication: CONTRACEPTION
     Dosage: 3 WEEKS OF USE AND 1 WEEK OF PAUSE
     Route: 048
     Dates: start: 1995
  3. SYNTHROID [Concomitant]
     Active Substance: LEVOTHYROXINE SODIUM
     Indication: THYROID DISORDER
     Dosage: 100 MICROGRAM, QAM
     Route: 048

REACTIONS (8)
  - Urinary tract infection [Unknown]
  - Psychiatric symptom [Recovered/Resolved]
  - Cystitis [Unknown]
  - Epilepsy [Not Recovered/Not Resolved]
  - Skin disorder [Recovered/Resolved]
  - Urinary tract infection [Not Recovered/Not Resolved]
  - Cystitis [Not Recovered/Not Resolved]
  - Vulvovaginal mycotic infection [Not Recovered/Not Resolved]

NARRATIVE: CASE EVENT DATE: 2013
